FAERS Safety Report 21025707 (Version 2)
Quarter: 2023Q4

REPORT INFORMATION
  Report Type: Spontaneous
  Country: GB (occurrence: GB)
  Receive Date: 20220630
  Receipt Date: 20231117
  Transmission Date: 20240110
  Serious: Yes (Life-Threatening, Hospitalization, Other)
  Sender: FDA-Public Use
  Company Number: GB-TEVA-2022-GB-2049742

PATIENT
  Age: 48 Year
  Sex: Female

DRUGS (4)
  1. DOCETAXEL [Suspect]
     Active Substance: DOCETAXEL\DOCETAXEL ANHYDROUS
     Indication: HER2 positive breast cancer
     Route: 065
  2. CARBOPLATIN [Suspect]
     Active Substance: CARBOPLATIN
     Indication: HER2 positive breast cancer
     Route: 065
  3. TRASTUZUMAB [Suspect]
     Active Substance: TRASTUZUMAB
     Indication: HER2 positive breast cancer
     Route: 065
  4. PERTUZUMAB [Suspect]
     Active Substance: PERTUZUMAB
     Indication: HER2 positive breast cancer
     Route: 065

REACTIONS (13)
  - Neutropenic colitis [Recovered/Resolved]
  - Oesophageal perforation [Recovering/Resolving]
  - Respiratory disorder [Recovering/Resolving]
  - Cardiac arrest [Recovered/Resolved]
  - Pneumothorax [Recovering/Resolving]
  - Pneumomediastinum [Recovering/Resolving]
  - Pleural effusion [Recovering/Resolving]
  - Pulmonary embolism [Recovering/Resolving]
  - Candida infection [Recovering/Resolving]
  - Clostridial sepsis [Recovering/Resolving]
  - Regurgitation [Recovered/Resolved]
  - Deep vein thrombosis [Recovering/Resolving]
  - Large intestine perforation [Recovering/Resolving]
